FAERS Safety Report 8966498 (Version 1)
Quarter: 2012Q4

REPORT INFORMATION
  Report Type: 
  Country: US (occurrence: US)
  Receive Date: 20121217
  Receipt Date: 20121217
  Transmission Date: 20130627
  Serious: No
  Sender: FDA-Public Use
  Company Number: US-BAYER-2012-128413

PATIENT
  Sex: Female

DRUGS (2)
  1. BEYAZ [Suspect]
     Indication: ACNE
  2. YASMIN [Suspect]
     Indication: ACNE
     Dosage: UNK

REACTIONS (4)
  - Breast tenderness [None]
  - Acne [Not Recovered/Not Resolved]
  - Drug ineffective [None]
  - Off label use [None]
